FAERS Safety Report 17083189 (Version 3)
Quarter: 2020Q2

REPORT INFORMATION
  Report Type: Spontaneous
  Country: US (occurrence: US)
  Receive Date: 20191127
  Receipt Date: 20200409
  Transmission Date: 20200713
  Serious: Yes (Other)
  Sender: FDA-Public Use
  Company Number: US-JAZZ-JPI-P-020439

PATIENT
  Sex: Female
  Weight: 87.2 kg

DRUGS (3)
  1. XYREM [Suspect]
     Active Substance: SODIUM OXYBATE
     Indication: NARCOLEPSY
     Dosage: 2.5 GRAM, QD
     Route: 048
     Dates: start: 20100318, end: 201003
  2. XYREM [Suspect]
     Active Substance: SODIUM OXYBATE
     Dosage: 4.5 G, BID
     Route: 048
     Dates: start: 20100414
  3. XYREM [Suspect]
     Active Substance: SODIUM OXYBATE
     Dosage: SINGLE (UNSPECIFIED DOSE CHANGE)
     Route: 048
     Dates: start: 2010, end: 2010

REACTIONS (2)
  - Osteoarthritis [Unknown]
  - Condition aggravated [Unknown]
